FAERS Safety Report 4839832-4 (Version None)
Quarter: 2005Q4

REPORT INFORMATION
  Report Type: 
  Country: None (occurrence: None)
  Receive Date: 20051125
  Receipt Date: 20051114
  Transmission Date: 20060501
  Serious: Yes (Hospitalization)
  Sender: FDA-Public Use
  Company Number: HQWYE128320OCT05

PATIENT
  Age: 27 Year
  Sex: Female

DRUGS (1)
  1. DUOLUTON                (NORGESTREL/ETHINYL ESTRADIO) [Suspect]
     Indication: MENSTRUATION IRREGULAR
     Route: 048
     Dates: start: 20031001, end: 20051001

REACTIONS (3)
  - EPSTEIN-BARR VIRUS ANTIBODY POSITIVE [None]
  - EPSTEIN-BARR VIRUS ANTIGEN POSITIVE [None]
  - HEPATITIS [None]
